FAERS Safety Report 25234629 (Version 1)
Quarter: 2025Q2

REPORT INFORMATION
  Report Type: Spontaneous
  Country: CN (occurrence: CN)
  Receive Date: 20250424
  Receipt Date: 20250424
  Transmission Date: 20250716
  Serious: Yes (Hospitalization)
  Sender: ACCORD
  Company Number: CN-Accord-481245

PATIENT
  Age: 35 Year
  Sex: Female

DRUGS (3)
  1. QUETIAPINE [Suspect]
     Active Substance: QUETIAPINE
     Indication: Psychotic disorder
     Dosage: INCREASED
  2. LITHIUM [Suspect]
     Active Substance: LITHIUM
     Indication: Psychotic disorder
     Dosage: INCREASED
  3. VALPROATE MAGNESIUM [Suspect]
     Active Substance: VALPROATE MAGNESIUM
     Indication: Bipolar disorder
     Dosage: SINCE 3 YEARS

REACTIONS (3)
  - Urinary incontinence [Recovered/Resolved]
  - Neuroleptic malignant syndrome [Recovered/Resolved]
  - Cytotoxic lesions of corpus callosum [Recovered/Resolved]
